FAERS Safety Report 9200960 (Version 1)
Quarter: 2013Q2

REPORT INFORMATION
  Report Type: Spontaneous
  Country: GB (occurrence: GB)
  Receive Date: 20130401
  Receipt Date: 20130401
  Transmission Date: 20140414
  Serious: Yes (Other)
  Sender: FDA-Public Use
  Company Number: GB-JNJFOC-20130315985

PATIENT
  Age: 57 Year
  Sex: Female
  Weight: 56 kg

DRUGS (7)
  1. XARELTO [Suspect]
     Indication: CEREBROVASCULAR ACCIDENT PROPHYLAXIS
     Route: 048
     Dates: start: 20121130, end: 20121221
  2. XARELTO [Suspect]
     Indication: ATRIAL FIBRILLATION
     Route: 048
     Dates: start: 20121130, end: 20121221
  3. ATORVASTATIN [Concomitant]
     Route: 065
  4. CITALOPRAM [Concomitant]
     Route: 065
  5. CLOPIDOGREL [Concomitant]
     Route: 065
  6. ESOMEPRAZOLE [Concomitant]
     Route: 065
  7. ESOMEPRAZOLE [Concomitant]
     Route: 065

REACTIONS (1)
  - Gastrooesophageal reflux disease [Unknown]
